FAERS Safety Report 17877206 (Version 2)
Quarter: 2021Q1

REPORT INFORMATION
  Report Type: Spontaneous
  Country: US (occurrence: US)
  Receive Date: 20200609
  Receipt Date: 20210121
  Transmission Date: 20210419
  Serious: No
  Sender: FDA-Public Use
  Company Number: US-BIOMARINAP-US-2020-130125

PATIENT
  Sex: Male
  Weight: 35.83 kg

DRUGS (2)
  1. KUVAN [Suspect]
     Active Substance: SAPROPTERIN DIHYDROCHLORIDE
     Indication: PRODUCT USED FOR UNKNOWN INDICATION
     Dosage: 500 MILLIGRAM, QD
     Route: 048
  2. KUVAN [Suspect]
     Active Substance: SAPROPTERIN DIHYDROCHLORIDE
     Dosage: 700 MILLIGRAM, QD
     Route: 048

REACTIONS (8)
  - Behaviour disorder [Unknown]
  - Anxiety [Unknown]
  - Nervousness [Unknown]
  - Depression [Unknown]
  - Mood swings [Unknown]
  - Aggression [Unknown]
  - Psychomotor hyperactivity [Unknown]
  - Irritability [Unknown]
